FAERS Safety Report 9894112 (Version 1)
Quarter: 2014Q1

REPORT INFORMATION
  Report Type: Spontaneous
  Country: FR (occurrence: FR)
  Receive Date: 20140213
  Receipt Date: 20140213
  Transmission Date: 20141002
  Serious: Yes (Death, Hospitalization)
  Sender: FDA-Public Use
  Company Number: FR-PFIZER INC-2014036489

PATIENT
  Age: 55 Year
  Sex: 0

DRUGS (7)
  1. DOXORUBICIN HCL [Suspect]
     Indication: WALDENSTROM^S MACROGLOBULINAEMIA
     Dosage: 5 COURSES
     Route: 041
     Dates: start: 2002
  2. CYCLOPHOSPHAMIDE [Suspect]
     Indication: WALDENSTROM^S MACROGLOBULINAEMIA
     Dosage: 10 COURSES
     Route: 041
     Dates: start: 2002
  3. CHLORAMINOPHENE [Suspect]
     Indication: WALDENSTROM^S MACROGLOBULINAEMIA
     Dosage: 6 COURSES
     Route: 048
     Dates: start: 2002
  4. FLUDARABINE PHOSPHATE [Suspect]
     Indication: WALDENSTROM^S MACROGLOBULINAEMIA
     Dosage: 11 COURSES
     Route: 041
     Dates: start: 2002
  5. MABTHERA [Suspect]
     Indication: WALDENSTROM^S MACROGLOBULINAEMIA
     Dosage: 10 COURSES
     Route: 041
     Dates: start: 2002
  6. ONCOVIN [Suspect]
     Indication: WALDENSTROM^S MACROGLOBULINAEMIA
     Dosage: 5 COURSES
     Route: 042
  7. PREDNISONE [Concomitant]
     Indication: WALDENSTROM^S MACROGLOBULINAEMIA
     Dosage: 5 COURSES
     Dates: start: 2002

REACTIONS (2)
  - Second primary malignancy [Fatal]
  - Acute myeloid leukaemia [Fatal]
